FAERS Safety Report 17543970 (Version 1)
Quarter: 2020Q1

REPORT INFORMATION
  Report Type: Spontaneous
  Country: US (occurrence: US)
  Receive Date: 20200316
  Receipt Date: 20200316
  Transmission Date: 20200409
  Serious: Yes (Other)
  Sender: FDA-Public Use
  Company Number: US-009507513-2003USA003984

PATIENT
  Sex: Male

DRUGS (1)
  1. INTRON A [Suspect]
     Active Substance: INTERFERON ALFA-2B
     Indication: CARCINOMA IN SITU OF EYE
     Dosage: 0.5 MILLILITER,  WEEKLY (QW), INTO CONJUNCTIVA ADJ TO ABNORMAL TISSUE; (STRENGTH 18 MU)
     Route: 057

REACTIONS (2)
  - Product prescribing issue [Unknown]
  - Intercepted product prescribing error [Unknown]
